FAERS Safety Report 10218365 (Version 1)
Quarter: 2014Q2

REPORT INFORMATION
  Report Type: Spontaneous
  Country: DE (occurrence: DE)
  Receive Date: 20140605
  Receipt Date: 20140605
  Transmission Date: 20141212
  Serious: Yes (Hospitalization, Other)
  Sender: FDA-Public Use
  Company Number: DE-009507513-1406DEU000781

PATIENT
  Age: 56 Year
  Sex: Male

DRUGS (7)
  1. MIRTAZAPIN STADA [Suspect]
     Dosage: 7.5MG, 1D
     Route: 048
     Dates: start: 20120702, end: 20130925
  2. CITALOPRAM [Concomitant]
     Dosage: 40 MG, 1 DAY
     Route: 048
     Dates: start: 20120702
  3. RAMIPRIL [Concomitant]
     Dosage: 10 MG, 1 DAY
     Route: 048
     Dates: start: 201212
  4. TORSEMIDE [Concomitant]
     Dosage: 10 MG, 1 DAY
     Route: 048
     Dates: start: 201205
  5. AMLODIPINE [Concomitant]
     Dosage: 2.5 MG, 1 DAY
     Route: 048
     Dates: start: 201301
  6. ASPIRIN [Concomitant]
     Dosage: 100 MG, 1 DAY
     Route: 048
  7. ATORVASTATIN [Concomitant]
     Dosage: 80 MG, 1 DAY
     Route: 048
     Dates: start: 201207

REACTIONS (1)
  - Nightmare [Recovered/Resolved]
